FAERS Safety Report 22163266 (Version 7)
Quarter: 2023Q4

REPORT INFORMATION
  Report Type: Report from Study
  Country: US (occurrence: US)
  Receive Date: 20230401
  Receipt Date: 20231222
  Transmission Date: 20240109
  Serious: No
  Sender: FDA-Public Use
  Company Number: US-002147023-NVSC2023US071828

PATIENT
  Age: 54 Year
  Sex: Female

DRUGS (1)
  1. KESIMPTA [Suspect]
     Active Substance: OFATUMUMAB
     Indication: Relapsing multiple sclerosis
     Dosage: 20 MG, QMO
     Route: 058
     Dates: start: 20220420

REACTIONS (4)
  - Memory impairment [Not Recovered/Not Resolved]
  - Condition aggravated [Unknown]
  - Gait disturbance [Not Recovered/Not Resolved]
  - Hordeolum [Not Recovered/Not Resolved]

NARRATIVE: CASE EVENT DATE: 20230327
